FAERS Safety Report 9413901 (Version 1)
Quarter: 2013Q3

REPORT INFORMATION
  Report Type: Spontaneous
  Country: US (occurrence: US)
  Receive Date: 20130723
  Receipt Date: 20130723
  Transmission Date: 20140515
  Serious: No
  Sender: FDA-Public Use
  Company Number: US-TEVA-420492USA

PATIENT
  Age: 48 Year
  Sex: Female
  Weight: 47.67 kg

DRUGS (13)
  1. PLAN B ONE-STEP [Suspect]
     Indication: POST COITAL CONTRACEPTION
     Dosage: 1.5 MILLIGRAM DAILY;
     Route: 048
     Dates: start: 20130701, end: 20130701
  2. TYROSINE [Concomitant]
     Indication: PRIMARY HYPOTHYROIDISM
  3. ACTONEL [Concomitant]
     Indication: OSTEOPOROSIS
  4. PLAQUENIL [Concomitant]
     Indication: RHEUMATOID ARTHRITIS
  5. BUTRANS PATCH [Concomitant]
     Indication: PAIN MANAGEMENT
  6. PREDNISONE [Concomitant]
     Indication: AUTOIMMUNE DISORDER
  7. LAMICTAL [Concomitant]
     Indication: COMPLEX REGIONAL PAIN SYNDROME
  8. AMBIEN [Concomitant]
     Indication: SLEEP DISORDER
  9. TOPAMAX [Concomitant]
     Indication: SLEEP DISORDER
  10. CLONAZEPAM [Concomitant]
     Indication: ANXIETY
  11. VITAMIN B12 [Concomitant]
     Indication: MEDICAL DIET
  12. MIRALAX [Concomitant]
     Indication: CONSTIPATION
  13. NUVIGIL [Concomitant]
     Indication: FATIGUE

REACTIONS (2)
  - Alopecia [Not Recovered/Not Resolved]
  - Menstruation irregular [Not Recovered/Not Resolved]
